FAERS Safety Report 22651520 (Version 1)
Quarter: 2023Q2

REPORT INFORMATION
  Report Type: Report from Study
  Country: CA (occurrence: CA)
  Receive Date: 20230628
  Receipt Date: 20230628
  Transmission Date: 20230722
  Serious: Yes (Other)
  Sender: FDA-Public Use
  Company Number: CA-JNJFOC-20220138210

PATIENT
  Age: 61 Year
  Sex: Male
  Weight: 106 kg

DRUGS (2)
  1. REMICADE [Suspect]
     Active Substance: INFLIXIMAB
     Indication: Crohn^s disease
     Dosage: NEXT INFUSION RECEIVED ON 13-APR-2017
     Route: 042
     Dates: start: 20170227
  2. REMICADE [Suspect]
     Active Substance: INFLIXIMAB
     Route: 042

REACTIONS (7)
  - Nephrolithiasis [Not Recovered/Not Resolved]
  - Bladder neoplasm [Unknown]
  - Prostatic operation [Unknown]
  - Diarrhoea [Unknown]
  - Abdominal pain [Unknown]
  - Off label use [Unknown]
  - Product use issue [Unknown]

NARRATIVE: CASE EVENT DATE: 20220201
